FAERS Safety Report 8230334-4 (Version None)
Quarter: 2012Q1

REPORT INFORMATION
  Report Type: 
  Country: None (occurrence: None)
  Receive Date: 20120322
  Receipt Date: 20120322
  Transmission Date: 20120608
  Serious: No
  Sender: FDA-Public Use
  Company Number: None

PATIENT
  Age: 40 Year
  Sex: Female

DRUGS (2)
  1. AMOXICILLIN [Suspect]
     Dates: start: 20101123, end: 20101130
  2. WELLBUTRIN SR [Suspect]
     Dates: start: 20101111, end: 20101207

REACTIONS (15)
  - RASH [None]
  - SKIN TEST POSITIVE [None]
  - ABDOMINAL PAIN [None]
  - HEPATITIS CHOLESTATIC [None]
  - URTICARIA [None]
  - HEPATOSPLENOMEGALY [None]
  - LYMPHADENOPATHY [None]
  - HEPATIC FIBROSIS [None]
  - HEPATIC NECROSIS [None]
  - DRUG RASH WITH EOSINOPHILIA AND SYSTEMIC SYMPTOMS [None]
  - EOSINOPHILIA [None]
  - OROPHARYNGEAL PAIN [None]
  - PRURITUS [None]
  - SINUSITIS [None]
  - LIVER INJURY [None]
